FAERS Safety Report 7328509-1 (Version None)
Quarter: 2011Q1

REPORT INFORMATION
  Report Type: 
  Country: None (occurrence: None)
  Receive Date: 20110303
  Receipt Date: 20110223
  Transmission Date: 20110831
  Serious: Yes (Other)
  Sender: FDA-Public Use
  Company Number: CA-BAXTER-2011BH004764

PATIENT
  Age: 86 Year
  Sex: Female
  Weight: 64 kg

DRUGS (4)
  1. GAMMAGARD LIQUID [Suspect]
     Route: 065
     Dates: start: 20110115, end: 20110115
  2. GAMMAGARD LIQUID [Suspect]
     Indication: SECONDARY IMMUNODEFICIENCY
     Route: 065
     Dates: start: 20110114, end: 20110115
  3. GAMMAGARD LIQUID [Suspect]
     Route: 065
     Dates: start: 20110115, end: 20110115
  4. GAMMAGARD LIQUID [Suspect]
     Indication: THROMBOCYTOPENIA
     Route: 065
     Dates: start: 20110114, end: 20110115

REACTIONS (1)
  - HAEMOLYSIS [None]
